FAERS Safety Report 5340453-8 (Version None)
Quarter: 2007Q2

REPORT INFORMATION
  Report Type: 
  Country: None (occurrence: None)
  Receive Date: 20070531
  Receipt Date: 20070518
  Transmission Date: 20071010
  Serious: Yes (Other)
  Sender: FDA-Public Use
  Company Number: US-PFIZER INC-2007041848

PATIENT
  Sex: Female

DRUGS (2)
  1. DEPO-PROVERA SUSPENSION/INJ [Suspect]
     Indication: CONTRACEPTION
     Dosage: FREQ:FIRST INJECTION
     Route: 030
     Dates: start: 19950101, end: 19950101
  2. DEPO-PROVERA SUSPENSION/INJ [Suspect]
     Dosage: FREQ:LAST INJECTION
     Route: 030
     Dates: start: 20050501, end: 20050501

REACTIONS (2)
  - FRACTURE [None]
  - OSTEOPOROSIS [None]
